FAERS Safety Report 6615876-7 (Version None)
Quarter: 2010Q1

REPORT INFORMATION
  Report Type: 
  Country: None (occurrence: None)
  Receive Date: 20100226
  Receipt Date: 20100215
  Transmission Date: 20100710
  Serious: Yes (Hospitalization)
  Sender: FDA-Public Use
  Company Number: 1000011531

PATIENT
  Age: 59 Year
  Sex: Male

DRUGS (4)
  1. CITALOPRAM HYDROBROMIDE [Suspect]
     Dosage: 10 MG (10 MG,1 IN 1 D), ORAL
     Route: 048
     Dates: start: 20061026, end: 20061101
  2. CITALOPRAM HYDROBROMIDE [Suspect]
     Dosage: 30 MG(30 MG,1 IN 1 D),ORAL
     Route: 048
     Dates: start: 20061109, end: 20061113
  3. DOXEPIN HCL [Suspect]
     Dosage: 50-70 MG ( 1 IN 1 D), ORAL
     Route: 048
     Dates: start: 19860101, end: 20061116
  4. BEZAFIBRAT RATIO [Concomitant]

REACTIONS (7)
  - ANXIETY [None]
  - CHEST DISCOMFORT [None]
  - DRUG INTERACTION [None]
  - DYSPHAGIA [None]
  - DYSPNOEA [None]
  - MUSCULOSKELETAL STIFFNESS [None]
  - PLATELET COUNT INCREASED [None]
